FAERS Safety Report 10167568 (Version 1)
Quarter: 2014Q2

REPORT INFORMATION
  Report Type: Spontaneous
  Country: FR (occurrence: FR)
  Receive Date: 20140512
  Receipt Date: 20140512
  Transmission Date: 20141212
  Serious: Yes (Hospitalization)
  Sender: FDA-Public Use
  Company Number: FR-TEVA-480069ISR

PATIENT
  Age: 52 Year
  Sex: Female

DRUGS (7)
  1. IBUPROFEN [Suspect]
     Indication: FIBROMYALGIA
     Dosage: 800 MILLIGRAM DAILY; LONG-TERM TREATMENT
     Route: 048
     Dates: end: 20131220
  2. LUTENYL 3.75MG [Suspect]
     Indication: HORMONE REPLACEMENT THERAPY
     Dosage: STARTED 1.5 YEARS AGO
     Route: 048
     Dates: end: 20131222
  3. EPITOMAX 50MG [Suspect]
     Dosage: STARTED 1.5 YEARS AGO
     Route: 048
     Dates: end: 20131222
  4. DOLIPRANE 1000MG [Suspect]
     Indication: FIBROMYALGIA
     Dosage: 4 DOSAGE FORMS DAILY; LONG-TERM TREATMENT
     Route: 048
     Dates: end: 20131221
  5. MODURETIC [Suspect]
     Dosage: STARTED 3 YEARS AGO
     Route: 048
     Dates: end: 20131222
  6. LEVOTHYROX [Suspect]
  7. AMOXICILLINE [Concomitant]
     Dosage: 2 GRAM DAILY;
     Dates: start: 20131220, end: 20131221

REACTIONS (8)
  - Rash maculo-papular [Recovered/Resolved]
  - Cheilitis [Recovered/Resolved]
  - Vulvar erosion [Recovered/Resolved]
  - Keratitis [Recovering/Resolving]
  - Hepatitis cholestatic [Recovering/Resolving]
  - Oropharyngeal pain [Unknown]
  - Rhinitis [Unknown]
  - Pyrexia [Unknown]
